FAERS Safety Report 5384959-4 (Version None)
Quarter: 2007Q3

REPORT INFORMATION
  Report Type: 
  Country: None (occurrence: None)
  Receive Date: 20070709
  Receipt Date: 20070628
  Transmission Date: 20080115
  Serious: Yes (Other)
  Sender: FDA-Public Use
  Company Number: 07072166

PATIENT
  Sex: Female

DRUGS (1)
  1. WARFARIN SODIUM [Suspect]
     Indication: ANTICOAGULANT THERAPY
     Dosage: ORAL
     Route: 048

REACTIONS (11)
  - DRUG INTERACTION [None]
  - EYE HAEMORRHAGE [None]
  - HEART VALVE REPLACEMENT [None]
  - IMPAIRED HEALING [None]
  - INTERNATIONAL NORMALISED RATIO DECREASED [None]
  - ONYCHOCLASIS [None]
  - PHARMACEUTICAL PRODUCT COMPLAINT [None]
  - RASH ERYTHEMATOUS [None]
  - RASH GENERALISED [None]
  - SCAR [None]
  - SKIN ATROPHY [None]
